FAERS Safety Report 18279755 (Version 3)
Quarter: 2020Q4

REPORT INFORMATION
  Report Type: Spontaneous
  Country: US (occurrence: US)
  Receive Date: 20200917
  Receipt Date: 20201204
  Transmission Date: 20210113
  Serious: No
  Sender: FDA-Public Use
  Company Number: US-ASTRAZENECA-2020SF10492

PATIENT
  Age: 70 Year
  Sex: Female

DRUGS (5)
  1. ADVAIR HFA [Concomitant]
     Active Substance: FLUTICASONE PROPIONATE\SALMETEROL XINAFOATE
  2. ALBUTEROL. [Concomitant]
     Active Substance: ALBUTEROL
     Dosage: AS REQUIRED
  3. PULMICORT FLEXHALER [Suspect]
     Active Substance: BUDESONIDE
     Dosage: 180 UG, 1-2 PUFFS AT A TIME
     Route: 055
  4. SINGULAIR [Concomitant]
     Active Substance: MONTELUKAST SODIUM
  5. PREDNISONE. [Concomitant]
     Active Substance: PREDNISONE

REACTIONS (7)
  - Drug dose omission by device [Unknown]
  - Intentional device misuse [Unknown]
  - Bronchitis [Unknown]
  - Dyspnoea [Unknown]
  - Chest discomfort [Unknown]
  - Device issue [Unknown]
  - Asthenia [Unknown]

NARRATIVE: CASE EVENT DATE: 2020
